FAERS Safety Report 6749487-X (Version None)
Quarter: 2010Q2

REPORT INFORMATION
  Report Type: 
  Country: None (occurrence: None)
  Receive Date: 20100601
  Receipt Date: 20100522
  Transmission Date: 20101027
  Serious: Yes (Other)
  Sender: FDA-Public Use
  Company Number: US-ROCHE-705964

PATIENT
  Sex: Female

DRUGS (9)
  1. PEGASYS [Suspect]
     Indication: HEPATITIS C
     Route: 065
     Dates: start: 20100227
  2. RIBAVIRIN [Suspect]
     Indication: HEPATITIS C
     Dosage: DIVIDED DOSES
     Route: 065
     Dates: start: 20100227
  3. MORPHINE SULFATE CONTIN [Suspect]
     Indication: DRUG USE FOR UNKNOWN INDICATION
     Dosage: DRUG:MORPHINE CONTIN
     Route: 065
  4. MORPHINE SULFATE CONTIN [Suspect]
     Dosage: DOSE INCREASED
     Route: 065
  5. CYMBALTA [Concomitant]
  6. NEURONTIN [Concomitant]
  7. SOMA [Concomitant]
  8. MOTRIN [Concomitant]
  9. XANAX [Concomitant]
     Dosage: DRUG:ZANAX

REACTIONS (3)
  - FALL [None]
  - PSYCHOTIC DISORDER [None]
  - WRIST FRACTURE [None]
